FAERS Safety Report 12886891 (Version 2)
Quarter: 2016Q4

REPORT INFORMATION
  Report Type: Spontaneous
  Country: US (occurrence: US)
  Receive Date: 20161026
  Receipt Date: 20161115
  Transmission Date: 20170207
  Serious: Yes (Hospitalization)
  Sender: FDA-Public Use
  Company Number: US-MAYNE PHARMA-2016MYN000744

PATIENT
  Age: 60 Year
  Sex: Female

DRUGS (5)
  1. CLOZAPINE. [Suspect]
     Active Substance: CLOZAPINE
     Dosage: 50 MG, AT 9AM
     Route: 048
  2. PRAVASTATIN. [Concomitant]
     Active Substance: PRAVASTATIN
  3. DEPAKOTE [Concomitant]
     Active Substance: DIVALPROEX SODIUM
  4. CLOZAPINE. [Suspect]
     Active Substance: CLOZAPINE
     Indication: SCHIZOPHRENIA
     Dosage: 150 MG, AT BEDTIME
     Route: 048
  5. LITHIUM. [Concomitant]
     Active Substance: LITHIUM

REACTIONS (2)
  - Psychotic disorder [Unknown]
  - Treatment noncompliance [Unknown]

NARRATIVE: CASE EVENT DATE: 201610
